FAERS Safety Report 7809678-3 (Version None)
Quarter: 2011Q4

REPORT INFORMATION
  Report Type: 
  Country: None (occurrence: None)
  Receive Date: 20111012
  Receipt Date: 20111011
  Transmission Date: 20120403
  Serious: Yes (Other)
  Sender: FDA-Public Use
  Company Number: US-GLAXOSMITHKLINE-A0942168A

PATIENT
  Age: 90 Year
  Sex: Female

DRUGS (7)
  1. ALBUTEROL [Concomitant]
  2. AGGRENOX [Concomitant]
  3. LISINOPRIL [Concomitant]
  4. LASIX [Concomitant]
  5. SIMVASTATIN [Concomitant]
  6. SLEEPING PILL [Concomitant]
  7. ADVAIR DISKUS 100/50 [Suspect]
     Indication: ASTHMA
     Dosage: 1PUFF TWICE PER DAY
     Route: 055

REACTIONS (5)
  - WHEEZING [None]
  - DRUG INEFFECTIVE [None]
  - ASTHMA [None]
  - COUGH [None]
  - PRODUCT QUALITY ISSUE [None]
